FAERS Safety Report 4973414-9 (Version None)
Quarter: 2006Q2

REPORT INFORMATION
  Report Type: 
  Country: None (occurrence: None)
  Receive Date: 20060413
  Receipt Date: 20060413
  Transmission Date: 20061013
  Serious: No
  Sender: FDA-Public Use
  Company Number: None

PATIENT
  Age: 45 Year
  Sex: Female
  Weight: 79.3795 kg

DRUGS (1)
  1. LIPITOR [Suspect]
     Indication: BLOOD CHOLESTEROL INCREASED
     Dosage: 1 TABLET   ONCE A DAY   PO
     Route: 048
     Dates: start: 20041101, end: 20060409

REACTIONS (9)
  - COGNITIVE DISORDER [None]
  - DIFFICULTY IN WALKING [None]
  - FATIGUE [None]
  - MUSCULAR WEAKNESS [None]
  - NECK PAIN [None]
  - NEUROPATHY PERIPHERAL [None]
  - SPEECH DISORDER [None]
  - TINNITUS [None]
  - TREMOR [None]
